FAERS Safety Report 16745847 (Version 1)
Quarter: 2019Q4

REPORT INFORMATION
  Report Type: Spontaneous
  Country: US (occurrence: US)
  Receive Date: 20190827
  Receipt Date: 20190827
  Transmission Date: 20200122
  Serious: Yes (Hospitalization)
  Sender: FDA-Public Use
  Company Number: None

PATIENT
  Age: 70 Year
  Sex: Female

DRUGS (10)
  1. BOTOX [Concomitant]
     Active Substance: ONABOTULINUMTOXINA
  2. VALACYCLOVIR TAB 500 MG [Concomitant]
  3. CYMBALTA CAP 20 MG [Concomitant]
  4. AMBIEN TAB 10 MG [Concomitant]
  5. HYDROXYZ HCL TAB 10 MG [Concomitant]
  6. CLOBETASOL CRE 0.05% [Concomitant]
  7. PANTOPRAZOLE INJ SOD 40 MG [Concomitant]
  8. SYNTHROID TAB 50 MCG [Concomitant]
  9. ENTECAVIR. [Suspect]
     Active Substance: ENTECAVIR
     Indication: PRODUCT USED FOR UNKNOWN INDICATION
     Route: 048
     Dates: start: 20190604
  10. AMODARONE TAB 200 MG [Concomitant]

REACTIONS (3)
  - Stem cell transplant [None]
  - Systemic lupus erythematosus [None]
  - Condition aggravated [None]
